FAERS Safety Report 4652853-X (Version None)
Quarter: 2005Q2

REPORT INFORMATION
  Report Type: 
  Country: None (occurrence: None)
  Receive Date: 20050502
  Receipt Date: 20050426
  Transmission Date: 20051028
  Serious: Yes (Other)
  Sender: FDA-Public Use
  Company Number: THQ2005A00378

PATIENT
  Age: 70 Year
  Sex: Female

DRUGS (15)
  1. LANSOPRAZOLE [Suspect]
  2. PREMARIN [Suspect]
  3. PERINDOPRIL [Concomitant]
  4. MEBEVERINE [Concomitant]
  5. SALBUTAMOL [Concomitant]
  6. CO-PROXAMOL (APOREX) [Concomitant]
  7. GABAPENTIN [Concomitant]
  8. CHLORAMPHENICOL EYE DROPS  (CHLORAMPHENICOL) (EYE DROPS) [Concomitant]
  9. DICLOFENAC SODIUM [Concomitant]
  10. KETOPROFEN [Concomitant]
  11. PREGABALIN [Concomitant]
  12. FELBINAC GEL (FELBINAC) [Concomitant]
  13. CETRIZIN (CEFATRIZINE PROPYLENGLYCOLATE SULFATE) [Concomitant]
  14. HYPROMELLOSE EYE DROPS (HYPROMELLOSE) (EYE DROPS) [Concomitant]
  15. .. [Concomitant]

REACTIONS (2)
  - BLOOD FIBRINOGEN DECREASED [None]
  - HAEMORRHAGIC DIATHESIS [None]
